FAERS Safety Report 5896584-7 (Version None)
Quarter: 2008Q3

REPORT INFORMATION
  Report Type: 
  Country: None (occurrence: None)
  Receive Date: 20080924
  Receipt Date: 20071023
  Transmission Date: 20090109
  Serious: No
  Sender: FDA-Public Use
  Company Number: US-BAYER-200712912BWH

PATIENT
  Sex: Male

DRUGS (7)
  1. AVELOX [Suspect]
     Indication: SINUSITIS
     Dosage: TOTAL DAILY DOSE: 400 MG  UNIT DOSE: 400 MG
     Route: 048
     Dates: start: 20070501
  2. LUSTRA [Concomitant]
     Indication: SKIN DISCOLOURATION
     Route: 061
  3. PREVACID [Concomitant]
  4. PRAVACHOL [Concomitant]
  5. CENTRUM [Concomitant]
  6. LOVAZA [Concomitant]
  7. DIOVAN [Concomitant]

REACTIONS (6)
  - ANGIOPATHY [None]
  - ASTHENOPIA [None]
  - OEDEMA PERIPHERAL [None]
  - PRURITUS [None]
  - RASH [None]
  - URTICARIA [None]
